FAERS Safety Report 12759908 (Version 1)
Quarter: 2016Q3

REPORT INFORMATION
  Report Type: Spontaneous
  Country: FR (occurrence: FR)
  Receive Date: 20160919
  Receipt Date: 20160919
  Transmission Date: 20161109
  Serious: Yes (Hospitalization)
  Sender: FDA-Public Use
  Company Number: FR-IPSEN BIOPHARMACEUTICALS, INC.-2016-07622

PATIENT
  Age: 69 Year
  Sex: Male

DRUGS (7)
  1. AMLODIPINE [Concomitant]
     Active Substance: AMLODIPINE BESYLATE
  2. XATRAL [Concomitant]
     Active Substance: ALFUZOSIN
  3. BISOCE [Concomitant]
     Active Substance: BISOPROLOL
  4. DYSPORT [Suspect]
     Active Substance: ABOBOTULINUMTOXINA
     Indication: HEMIPARESIS
     Dosage: 800 IU
     Route: 030
     Dates: start: 201606, end: 201606
  5. RAMIPRIL. [Concomitant]
     Active Substance: RAMIPRIL
  6. SEROPLEX [Concomitant]
     Active Substance: ESCITALOPRAM OXALATE
  7. KARDEGIC [Concomitant]
     Active Substance: ASPIRIN LYSINE

REACTIONS (2)
  - Dysphagia [Recovered/Resolved]
  - Bronchopneumopathy [Recovered/Resolved]

NARRATIVE: CASE EVENT DATE: 20160630
